FAERS Safety Report 10673982 (Version 3)
Quarter: 2019Q1

REPORT INFORMATION
  Report Type: Report from Study
  Country: US (occurrence: US)
  Receive Date: 20141224
  Receipt Date: 20190214
  Transmission Date: 20190417
  Serious: Yes (Other)
  Sender: FDA-Public Use
  Company Number: US-SA-2014SA175481

PATIENT
  Age: 59 Year
  Sex: Female

DRUGS (3)
  1. LYRICA [Concomitant]
     Active Substance: PREGABALIN
     Dosage: 50 MG
  2. TERIFLUNOMIDE. [Suspect]
     Active Substance: TERIFLUNOMIDE
     Dosage: 14 MG,QD
     Route: 048
     Dates: start: 20130517
  3. TERIFLUNOMIDE. [Suspect]
     Active Substance: TERIFLUNOMIDE
     Dosage: 14 MG,QD
     Route: 048

REACTIONS (20)
  - Balance disorder [Unknown]
  - Abdominal pain upper [Recovered/Resolved]
  - Ulcer [Recovered/Resolved]
  - Gastrointestinal inflammation [Not Recovered/Not Resolved]
  - Fall [Unknown]
  - Intestinal obstruction [Recovered/Resolved]
  - Wheelchair user [Unknown]
  - Speech disorder [Recovered/Resolved]
  - Diarrhoea [Recovered/Resolved]
  - Diverticulum [Not Recovered/Not Resolved]
  - Head injury [Unknown]
  - Muscular weakness [Unknown]
  - Eating disorder [Recovered/Resolved]
  - Pain [Unknown]
  - Walking aid user [Unknown]
  - Haemolytic anaemia [Recovering/Resolving]
  - Weight bearing difficulty [Unknown]
  - Condition aggravated [Not Recovered/Not Resolved]
  - Anaemia [Unknown]
  - Gait disturbance [Not Recovered/Not Resolved]

NARRATIVE: CASE EVENT DATE: 201412
